FAERS Safety Report 6411984-4 (Version None)
Quarter: 2009Q4

REPORT INFORMATION
  Report Type: 
  Country: None (occurrence: None)
  Receive Date: 20091023
  Receipt Date: 20091016
  Transmission Date: 20100525
  Serious: Yes (Hospitalization)
  Sender: FDA-Public Use
  Company Number: US-JNJFOC-20091006230

PATIENT
  Sex: Female
  Weight: 68.04 kg

DRUGS (2)
  1. DURAGESIC-100 [Suspect]
     Indication: BACK PAIN
     Route: 062
  2. UNKNOWN MEDICATION [Concomitant]

REACTIONS (3)
  - BODY HEIGHT INCREASED [None]
  - EXOSTOSIS [None]
  - INCORRECT DRUG ADMINISTRATION DURATION [None]
